FAERS Safety Report 6134558-1 (Version None)
Quarter: 2009Q1

REPORT INFORMATION
  Report Type: 
  Country: None (occurrence: None)
  Receive Date: 20090327
  Receipt Date: 20090325
  Transmission Date: 20090719
  Serious: Yes (Other)
  Sender: FDA-Public Use
  Company Number: US-BRISTOL-MYERS SQUIBB COMPANY-14502272

PATIENT
  Age: 52 Year
  Sex: Female
  Weight: 80 kg

DRUGS (1)
  1. ABILIFY [Suspect]
     Dosage: ABILIFY 15MG,NDC# 59148-009-13,LOT# 7M18251A, EXP. DATE:DEC-2010.
     Dates: start: 20080201, end: 20080401

REACTIONS (11)
  - AGGRESSION [None]
  - ANGER [None]
  - DISTURBANCE IN ATTENTION [None]
  - HYPERHIDROSIS [None]
  - IRRITABILITY [None]
  - MUSCLE SPASMS [None]
  - PAIN [None]
  - PANCREATIC INSUFFICIENCY [None]
  - RESTLESSNESS [None]
  - TREMOR [None]
  - URINARY RETENTION [None]
